FAERS Safety Report 20058493 (Version 1)
Quarter: 2021Q4

REPORT INFORMATION
  Report Type: Spontaneous
  Country: DE (occurrence: None)
  Receive Date: 20211111
  Receipt Date: 20211111
  Transmission Date: 20220303
  Serious: Yes (Hospitalization)
  Sender: FDA-Public Use
  Company Number: DE-Merck Healthcare KGaA-9278088

PATIENT
  Age: 40 Year
  Sex: Female

DRUGS (3)
  1. MAVENCLAD [Suspect]
     Active Substance: CLADRIBINE
     Indication: Relapsing multiple sclerosis
     Dosage: FIRST YEAR FIRST MONTH THERAPY
     Dates: start: 202009
  2. MAVENCLAD [Suspect]
     Active Substance: CLADRIBINE
     Dosage: FIRST YEAR SECOND MONTH THERAPY
     Dates: start: 202010
  3. MAVENCLAD [Suspect]
     Active Substance: CLADRIBINE
     Dosage: SECOND YEAR FIRST MONTH THERAPY
     Dates: start: 20211021, end: 20211025

REACTIONS (2)
  - Sensory disturbance [Recovering/Resolving]
  - Monoparesis [Recovering/Resolving]

NARRATIVE: CASE EVENT DATE: 20210901
